FAERS Safety Report 23860709 (Version 1)
Quarter: 2024Q2

REPORT INFORMATION
  Report Type: Spontaneous
  Country: TH (occurrence: TH)
  Receive Date: 20240516
  Receipt Date: 20240516
  Transmission Date: 20240715
  Serious: No
  Sender: FDA-Public Use
  Company Number: TH-ALKEM LABORATORIES LIMITED-TH-ALKEM-2023-06678

PATIENT
  Age: 3 Decade
  Sex: Male

DRUGS (3)
  1. ETORICOXIB [Interacting]
     Active Substance: ETORICOXIB
     Indication: Fibromyalgia
     Dosage: 90 MILLIGRAM (DAY 1)
     Route: 065
  2. TRAMADOL HYDROCHLORIDE AND ACETAMINOPHEN [Interacting]
     Active Substance: ACETAMINOPHEN\TRAMADOL HYDROCHLORIDE
     Indication: Fibromyalgia
     Dosage: UNK (37.5 MG/325 MG COMBINATION) DAY 1
     Route: 065
  3. EPERISONE [Suspect]
     Active Substance: EPERISONE
     Indication: Fibromyalgia
     Dosage: 50 MILLIGRAM (DAY 1)
     Route: 065

REACTIONS (3)
  - Depersonalisation/derealisation disorder [Recovered/Resolved]
  - Drug interaction [Unknown]
  - Therapy partial responder [Unknown]
